FAERS Safety Report 5919609-9 (Version None)
Quarter: 2008Q4

REPORT INFORMATION
  Report Type: 
  Country: None (occurrence: None)
  Receive Date: 20081015
  Receipt Date: 20080724
  Transmission Date: 20090506
  Serious: No
  Sender: FDA-Public Use
  Company Number: US-BRISTOL-MYERS SQUIBB COMPANY-14275895

PATIENT
  Sex: Female

DRUGS (1)
  1. KENALOG-40 [Suspect]
     Indication: EXPOSURE TO TOXIC AGENT
     Dosage: POTENCY:40MG/ML
     Dates: start: 20060501

REACTIONS (2)
  - ARTHRALGIA [None]
  - INJECTION SITE ATROPHY [None]
